FAERS Safety Report 8192840-0 (Version None)
Quarter: 2012Q1

REPORT INFORMATION
  Report Type: 
  Country: None (occurrence: None)
  Receive Date: 20120308
  Receipt Date: 20120306
  Transmission Date: 20120608
  Serious: Yes (Other)
  Sender: FDA-Public Use
  Company Number: US-PFIZER INC-2012060364

PATIENT
  Sex: Female

DRUGS (1)
  1. CHANTIX [Suspect]
     Dosage: UNK

REACTIONS (7)
  - STRESS [None]
  - MALAISE [None]
  - VOMITING [None]
  - NAUSEA [None]
  - DYSPNOEA [None]
  - DEPRESSED MOOD [None]
  - DIARRHOEA [None]
